FAERS Safety Report 6892562-X (Version None)
Quarter: 2010Q3

REPORT INFORMATION
  Report Type: 
  Country: None (occurrence: None)
  Receive Date: 20100731
  Receipt Date: 20080626
  Transmission Date: 20110219
  Serious: No
  Sender: FDA-Public Use
  Company Number: US-PFIZER INC-2008054459

PATIENT
  Sex: Female
  Weight: 99.5 kg

DRUGS (4)
  1. NEURONTIN [Suspect]
     Indication: MIGRAINE
     Dates: start: 20080621
  2. NEURONTIN [Suspect]
     Indication: RESTLESS LEGS SYNDROME
  3. NEXIUM [Concomitant]
  4. VITAMIN B-12 [Concomitant]

REACTIONS (1)
  - SEDATION [None]
